FAERS Safety Report 5523630-2 (Version None)
Quarter: 2007Q4

REPORT INFORMATION
  Report Type: 
  Country: None (occurrence: None)
  Receive Date: 20071121
  Receipt Date: 20071112
  Transmission Date: 20080405
  Serious: Yes (Other)
  Sender: FDA-Public Use
  Company Number: US-MERCK-0711USA02480

PATIENT
  Age: 56 Year
  Sex: Female

DRUGS (5)
  1. VYTORIN [Suspect]
     Indication: BLOOD CHOLESTEROL
     Route: 048
     Dates: start: 20070801, end: 20071101
  2. TRILEPTAL [Concomitant]
     Route: 065
  3. EFFEXOR [Concomitant]
     Route: 065
  4. KLONOPIN [Concomitant]
     Route: 065
  5. ADVIL LIQUI-GELS [Concomitant]
     Route: 065

REACTIONS (5)
  - INAPPROPRIATE SCHEDULE OF DRUG ADMINISTRATION [None]
  - PAIN [None]
  - RETINAL DETACHMENT [None]
  - RETINAL TEAR [None]
  - VITREOUS FLOATERS [None]
